APPROVED DRUG PRODUCT: EMADINE
Active Ingredient: EMEDASTINE DIFUMARATE
Strength: 0.05%
Dosage Form/Route: SOLUTION/DROPS;OPHTHALMIC
Application: N020706 | Product #001
Applicant: NOVARTIS PHARMACEUTICALS CORP
Approved: Dec 29, 1997 | RLD: Yes | RS: No | Type: DISCN